FAERS Safety Report 15786377 (Version 1)
Quarter: 2018Q4

REPORT INFORMATION
  Report Type: Spontaneous
  Country: US (occurrence: US)
  Receive Date: 20181212
  Receipt Date: 20181212
  Transmission Date: 20190205
  Serious: Yes (Hospitalization)
  Sender: FDA-Public Use
  Company Number: None

PATIENT
  Age: 61 Year
  Sex: Male
  Weight: 77.3 kg

DRUGS (18)
  1. CARVEDIOL [Concomitant]
     Active Substance: CARVEDILOL
  2. ADVAIR HFA [Concomitant]
     Active Substance: FLUTICASONE PROPIONATE\SALMETEROL XINAFOATE
  3. ATXOVAATATIN [Concomitant]
  4. MORPHINE [Concomitant]
     Active Substance: MORPHINE
  5. OMEPRAZOLE. [Concomitant]
     Active Substance: OMEPRAZOLE
  6. MATOPROLOL [Concomitant]
  7. IRON SULFATE [Concomitant]
     Active Substance: FERROUS SULFATE ANHYDROUS
  8. LISINOPRIL. [Concomitant]
     Active Substance: LISINOPRIL
  9. VOSEVI [Suspect]
     Active Substance: SOFOSBUVIR\VELPATASVIR\VOXILAPREVIR
     Indication: HEPATITIS C
     Route: 048
     Dates: start: 20180425, end: 20180726
  10. MULTIVITAMINE [Concomitant]
  11. THIAMINE. [Concomitant]
     Active Substance: THIAMINE
  12. BUMAX [Concomitant]
  13. OXYCODONE [Concomitant]
     Active Substance: OXYCODONE
  14. SPIRONOLACTONE, [Concomitant]
  15. ASPIRIN. [Concomitant]
     Active Substance: ASPIRIN
  16. FOLIC ACID. [Concomitant]
     Active Substance: FOLIC ACID
  17. FUROSEMIDE. [Concomitant]
     Active Substance: FUROSEMIDE
  18. LEVOFLIXACIN [Concomitant]

REACTIONS (4)
  - Abdominal pain upper [None]
  - Abdominal pain [None]
  - Dyspnoea [None]
  - Chest pain [None]

NARRATIVE: CASE EVENT DATE: 20180623
